FAERS Safety Report 10172707 (Version 1)
Quarter: 2014Q2

REPORT INFORMATION
  Report Type: Spontaneous
  Country: US (occurrence: US)
  Receive Date: 20140515
  Receipt Date: 20140515
  Transmission Date: 20141212
  Serious: No
  Sender: FDA-Public Use
  Company Number: US-MYLANLABS-2013S1020617

PATIENT
  Sex: Male

DRUGS (5)
  1. TAMSULOSIN HYDROCHLORIDE CAPSULES USP, [Suspect]
     Indication: BENIGN PROSTATIC HYPERPLASIA
     Route: 048
     Dates: start: 201304
  2. ATORVASTATIN [Concomitant]
     Indication: BLOOD CHOLESTEROL INCREASED
     Dosage: TAKEN FOR SEVERAL YEARS
     Route: 048
  3. METOPROLOL [Concomitant]
     Indication: BLOOD PRESSURE INCREASED
     Dosage: TAKEN FOR SEVERAL YEARS
     Route: 048
  4. RANITIDINE [Concomitant]
     Indication: GASTROOESOPHAGEAL REFLUX DISEASE
     Dosage: TAKEN FOR SEVERAL YEARS
     Route: 048
  5. ASA [Concomitant]
     Dosage: TAKEN FOR SEVERAL YEARS
     Route: 048

REACTIONS (1)
  - Foreign body [Not Recovered/Not Resolved]
